FAERS Safety Report 16268593 (Version 2)
Quarter: 2019Q2

REPORT INFORMATION
  Report Type: Report from Study
  Country: US (occurrence: US)
  Receive Date: 20190503
  Receipt Date: 20190528
  Transmission Date: 20190711
  Serious: Yes (Hospitalization)
  Sender: FDA-Public Use
  Company Number: US-BAYER-2019-085639

PATIENT
  Age: 60 Year
  Sex: Female

DRUGS (7)
  1. STIVARGA [Suspect]
     Active Substance: REGORAFENIB
     Indication: COLON CANCER
     Dosage: 80 MG, DAILY(FOR 21 DAYS EVERY 28 DAYS CYCLE)
     Route: 048
     Dates: start: 20190227, end: 2019
  2. ADMELOG [Concomitant]
     Active Substance: INSULIN LISPRO
     Dosage: UNK
  3. LEVEMIR [Concomitant]
     Active Substance: INSULIN DETEMIR
     Dosage: UNK
  4. TYLENOL [Concomitant]
     Active Substance: ACETAMINOPHEN
     Dosage: UNK
  5. ASCORBIC ACID. [Concomitant]
     Active Substance: ASCORBIC ACID
     Dosage: UNK
  6. LATANOPROST. [Concomitant]
     Active Substance: LATANOPROST
     Dosage: UNK
  7. HYDROCHLOROTHIAZIDE;TRIAMTERENE [Concomitant]
     Dosage: UNK

REACTIONS (4)
  - Drug ineffective [Recovered/Resolved]
  - Off label use [None]
  - Fatigue [Not Recovered/Not Resolved]
  - Hospitalisation [Unknown]
